FAERS Safety Report 6558463-1 (Version None)
Quarter: 2010Q1

REPORT INFORMATION
  Report Type: 
  Country: None (occurrence: None)
  Receive Date: 20100129
  Receipt Date: 20100121
  Transmission Date: 20100710
  Serious: Yes (Hospitalization)
  Sender: FDA-Public Use
  Company Number: AT-JNJFOC-20100108411

PATIENT
  Age: 47 Year
  Sex: Male

DRUGS (21)
  1. TOPAMAX [Suspect]
     Indication: DRUG USE FOR UNKNOWN INDICATION
  2. TOPAMAX [Suspect]
  3. TOPAMAX [Suspect]
  4. TOPAMAX [Suspect]
  5. TOPAMAX [Suspect]
  6. NEUROTOP [Concomitant]
  7. NEUROTOP [Concomitant]
  8. MIRTABENE [Concomitant]
  9. MIRTABENE [Concomitant]
  10. MIRTABENE [Concomitant]
  11. MIRTABENE [Concomitant]
  12. DOMINAL [Concomitant]
  13. SEROQUEL [Concomitant]
  14. SEROQUEL [Concomitant]
  15. DEPAKENE [Concomitant]
  16. DEPAKENE [Concomitant]
  17. DEPAKENE [Concomitant]
  18. DEPAKENE [Concomitant]
  19. DEPAKENE [Concomitant]
  20. DEPAKENE [Concomitant]
  21. TEMESTA [Concomitant]

REACTIONS (6)
  - AGITATION [None]
  - DELIRIUM [None]
  - DELUSION [None]
  - HALLUCINATION, AUDITORY [None]
  - HALLUCINATION, VISUAL [None]
  - SUICIDAL IDEATION [None]
